FAERS Safety Report 17147258 (Version 1)
Quarter: 2019Q4

REPORT INFORMATION
  Report Type: Spontaneous
  Country: GB (occurrence: GB)
  Receive Date: 20191212
  Receipt Date: 20191212
  Transmission Date: 20200122
  Serious: Yes (Life-Threatening, Hospitalization, Disabling)
  Sender: FDA-Public Use
  Company Number: GB-ALLERGAN-1950535US

PATIENT
  Sex: Female
  Weight: 119 kg

DRUGS (10)
  1. ZOMORPH [Concomitant]
     Active Substance: MORPHINE SULFATE
  2. TRAZODONE [Concomitant]
     Active Substance: TRAZODONE HYDROCHLORIDE
  3. BISOPROLOL [Concomitant]
     Active Substance: BISOPROLOL
  4. GABAPENTIN. [Concomitant]
     Active Substance: GABAPENTIN
  5. ATORVASTATIN [Concomitant]
     Active Substance: ATORVASTATIN
  6. AZATHIOPRINE. [Suspect]
     Active Substance: AZATHIOPRINE
     Indication: PRODUCT USED FOR UNKNOWN INDICATION
     Route: 048
  7. MEMANTINE. [Concomitant]
     Active Substance: MEMANTINE
  8. MIRTAZAPINE. [Concomitant]
     Active Substance: MIRTAZAPINE
  9. MESALAZINE UNK [Suspect]
     Active Substance: MESALAMINE
     Indication: PRODUCT USED FOR UNKNOWN INDICATION
     Route: 048
  10. LANSOPRAZOLE. [Concomitant]
     Active Substance: LANSOPRAZOLE

REACTIONS (2)
  - Sepsis [Not Recovered/Not Resolved]
  - Full blood count abnormal [Unknown]
